FAERS Safety Report 11301969 (Version 1)
Quarter: 2015Q3

REPORT INFORMATION
  Report Type: Spontaneous
  Country: US (occurrence: None)
  Receive Date: 20150723
  Receipt Date: 20150723
  Transmission Date: 20151125
  Serious: No
  Sender: FDA-Public Use
  Company Number: None

PATIENT
  Age: 63 Year
  Sex: Female
  Weight: 88.45 kg

DRUGS (3)
  1. BLISTEX DEEP RENEWAL BLISTEX INC [Suspect]
     Active Substance: DIMETHICONE\OCTINOXATE\OXYBENZONE
     Indication: DRY SKIN PROPHYLAXIS
     Dosage: APPLY FROM LIPSTICK-TYPE AS NEEDED APPLIED TO A SURFACE, USUALLY THE SKIN
     Route: 061
     Dates: start: 20150718, end: 20150719
  2. LISINOPRIL. [Concomitant]
     Active Substance: LISINOPRIL
  3. MULTI-VITAMIN [Concomitant]
     Active Substance: .ALPHA.-TOCOPHEROL ACETATE, DL-\ASCORBIC ACID\CYANOCOBALAMIN\FLUORIDE ION\FOLIC ACID\NIACIN\PYRIDOXINE\RIBOFLAVIN\THIAMINE\VITAMIN A\VITAMIN D

REACTIONS (5)
  - Lip swelling [None]
  - Urticaria [None]
  - Rash [None]
  - Pruritus [None]
  - Eye swelling [None]

NARRATIVE: CASE EVENT DATE: 20150718
